FAERS Safety Report 6715157-7 (Version None)
Quarter: 2010Q2

REPORT INFORMATION
  Report Type: 
  Country: None (occurrence: None)
  Receive Date: 20100507
  Receipt Date: 20100430
  Transmission Date: 20101027
  Serious: Yes (Hospitalization, Other)
  Sender: FDA-Public Use
  Company Number: US-AMGEN-QUU409630

PATIENT
  Sex: Female
  Weight: 66.3 kg

DRUGS (12)
  1. NPLATE [Suspect]
     Indication: IDIOPATHIC THROMBOCYTOPENIC PURPURA
     Dates: start: 20090306
  2. PREDNISONE [Concomitant]
     Dates: start: 20040301
  3. IMMU-G [Concomitant]
     Route: 042
     Dates: start: 20090219
  4. RITUXAN [Concomitant]
     Dates: start: 20090309
  5. VINCRISTINE [Concomitant]
     Dates: start: 20090316
  6. CYCLOSPORINE [Concomitant]
     Route: 048
     Dates: start: 20100218
  7. AZATHIOPRINE [Concomitant]
     Dates: start: 20090211
  8. CITRACAL PLUS D [Concomitant]
     Route: 048
  9. VALTREX [Concomitant]
     Route: 048
  10. MULTI-VITAMINS [Concomitant]
     Route: 048
  11. PROTONIX [Concomitant]
     Route: 048
  12. MACROBID [Concomitant]
     Route: 048

REACTIONS (9)
  - DIZZINESS [None]
  - DRUG INEFFECTIVE [None]
  - HAEMATURIA [None]
  - HEADACHE [None]
  - HYDRONEPHROSIS [None]
  - JOINT SWELLING [None]
  - LOSS OF CONSCIOUSNESS [None]
  - SKIN DISORDER [None]
  - THROMBOCYTOPENIA [None]
